FAERS Safety Report 5713913-5 (Version None)
Quarter: 2008Q2

REPORT INFORMATION
  Report Type: 
  Country: None (occurrence: None)
  Receive Date: 20080422
  Receipt Date: 20080422
  Transmission Date: 20081010
  Serious: Yes (Other)
  Sender: FDA-Public Use
  Company Number: None

PATIENT
  Age: 32 Year
  Sex: Female
  Weight: 82.1011 kg

DRUGS (1)
  1. LEVAQUIN [Suspect]
     Indication: CELLULITIS
     Dosage: 500 MG QD PO
     Route: 048
     Dates: start: 20080411, end: 20080412

REACTIONS (2)
  - HYPOAESTHESIA [None]
  - PARAESTHESIA [None]
